APPROVED DRUG PRODUCT: CYANOCOBALAMIN
Active Ingredient: CYANOCOBALAMIN
Strength: 1MG/ML
Dosage Form/Route: INJECTABLE;INJECTION
Application: A212915 | Product #001 | TE Code: AP
Applicant: SANDOZ INC
Approved: Jan 4, 2021 | RLD: No | RS: No | Type: RX